FAERS Safety Report 20883149 (Version 1)
Quarter: 2022Q2

REPORT INFORMATION
  Report Type: Spontaneous
  Country: US (occurrence: None)
  Receive Date: 20220526
  Receipt Date: 20220526
  Transmission Date: 20220721
  Serious: Yes (unspecified)
  Sender: FDA-Public Use
  Company Number: None

PATIENT
  Age: 66 Year
  Sex: Female
  Weight: 48.6 kg

DRUGS (34)
  1. EVUSHELD [Suspect]
     Active Substance: CILGAVIMAB\TIXAGEVIMAB
     Indication: COVID-19
     Route: 030
     Dates: start: 20220512, end: 20220512
  2. EVUSHELD [Suspect]
     Active Substance: CILGAVIMAB\TIXAGEVIMAB
     Indication: Prophylaxis
  3. ADVAIR HFA [Concomitant]
     Active Substance: FLUTICASONE PROPIONATE\SALMETEROL XINAFOATE
  4. SINGULAIR [Concomitant]
     Active Substance: MONTELUKAST SODIUM
  5. FLUTICASONE [Concomitant]
     Active Substance: FLUTICASONE
  6. ALLEGRA [Concomitant]
     Active Substance: FEXOFENADINE HYDROCHLORIDE
  7. ROSUVASTATIN [Concomitant]
     Active Substance: ROSUVASTATIN
  8. PRAVASTATIN [Concomitant]
     Active Substance: PRAVASTATIN
  9. PREDNISONE [Concomitant]
     Active Substance: PREDNISONE
  10. SYNTHROID [Concomitant]
     Active Substance: LEVOTHYROXINE SODIUM
  11. Cytomel (liothyronine) [Concomitant]
  12. ALENDRONATE [Concomitant]
     Active Substance: ALENDRONATE SODIUM
  13. BUDESONIDE [Concomitant]
     Active Substance: BUDESONIDE
  14. Pataday/Azelastine HCL [Concomitant]
  15. Immunoglobulin privigen [Concomitant]
  16. Hydrocort premed [Concomitant]
  17. PLAQUENIL [Concomitant]
     Active Substance: HYDROXYCHLOROQUINE SULFATE
  18. METHOTREXATE [Concomitant]
     Active Substance: METHOTREXATE
  19. ORENCIA [Concomitant]
     Active Substance: ABATACEPT
  20. FERROUS SULFATE [Concomitant]
     Active Substance: FERROUS SULFATE
  21. Ecotrin 81 mg ASA [Concomitant]
  22. Supplements/Vitamins Zinc picolinate [Concomitant]
  23. Acetyl l-carnitine alpha lipoic acid + Biotin [Concomitant]
  24. PRASTERONE [Concomitant]
     Active Substance: PRASTERONE
  25. COENZYME Q10 [Concomitant]
     Active Substance: DIETARY SUPPLEMENT\UBIDECARENONE
  26. DIETARY SUPPLEMENT\UBIDECARENONE [Concomitant]
     Active Substance: DIETARY SUPPLEMENT\UBIDECARENONE
  27. PYRIDOXINE HYDROCHLORIDE [Concomitant]
     Active Substance: PYRIDOXINE HYDROCHLORIDE
  28. Thome Senokot [Concomitant]
  29. VITAMIN B12 [Concomitant]
     Active Substance: CYANOCOBALAMIN
  30. MAGNESIUM [Concomitant]
     Active Substance: MAGNESIUM
  31. VITAMIN D3 [Concomitant]
     Active Substance: CHOLECALCIFEROL
  32. LEUCOVORIN [Concomitant]
     Active Substance: LEUCOVORIN
  33. B-2 [Concomitant]
  34. Calcium powder [Concomitant]

REACTIONS (15)
  - Throat tightness [None]
  - Pharyngeal swelling [None]
  - Nausea [None]
  - Chills [None]
  - Hyperhidrosis [None]
  - Pruritus [None]
  - Wheezing [None]
  - Cough [None]
  - Choking sensation [None]
  - Headache [None]
  - Vertigo [None]
  - Neuritis [None]
  - Autonomic nervous system imbalance [None]
  - Postural orthostatic tachycardia syndrome [None]
  - Blood pressure fluctuation [None]

NARRATIVE: CASE EVENT DATE: 20220513
